FAERS Safety Report 19727816 (Version 1)
Quarter: 2021Q3

REPORT INFORMATION
  Report Type: Spontaneous
  Country: DE (occurrence: DE)
  Receive Date: 20210820
  Receipt Date: 20210820
  Transmission Date: 20211014
  Serious: Yes (Other)
  Sender: FDA-Public Use
  Company Number: DE-AUROBINDO-AUR-APL-2014-05974

PATIENT
  Age: 1 Day
  Sex: Male
  Weight: 1.97 kg

DRUGS (2)
  1. QUETIAPINE AUROBINDO FILM?COATED TABLETS 300MG [Suspect]
     Active Substance: QUETIAPINE
     Indication: SCHIZOPHRENIA
     Dosage: UNK
     Route: 064
     Dates: start: 20130719, end: 20130719
  2. QUETIAPINE AUROBINDO FILM?COATED TABLETS 300MG [Suspect]
     Active Substance: QUETIAPINE
     Indication: SUICIDAL IDEATION
     Dosage: 300 MG,DAILY,
     Route: 064
     Dates: start: 20130719, end: 20130719

REACTIONS (10)
  - Foetal growth restriction [Unknown]
  - Neonatal respiratory distress [Recovered/Resolved]
  - Hypotonia neonatal [Recovered/Resolved]
  - Foetal exposure during pregnancy [Recovered/Resolved]
  - Premature baby [Unknown]
  - Anaemia neonatal [Recovered/Resolved]
  - Selective eating disorder [Recovered/Resolved]
  - Low birth weight baby [Recovering/Resolving]
  - Temperature regulation disorder [Recovered/Resolved]
  - Antipsychotic drug level above therapeutic [Unknown]

NARRATIVE: CASE EVENT DATE: 20130719
